FAERS Safety Report 7623924-0 (Version None)
Quarter: 2011Q3

REPORT INFORMATION
  Report Type: 
  Country: None (occurrence: None)
  Receive Date: 20110712
  Receipt Date: 20110628
  Transmission Date: 20111222
  Serious: Yes (Other)
  Sender: FDA-Public Use
  Company Number: 2011P1007448

PATIENT
  Age: 62 Year
  Sex: Female
  Weight: 102.9665 kg

DRUGS (10)
  1. ROPINIROLE [Suspect]
     Indication: RESTLESS LEGS SYNDROME
     Dosage: 1 MG;QD;PO
     Route: 048
     Dates: start: 20080226, end: 20080101
  2. ESTRADIOL [Concomitant]
  3. DIOVAN [Concomitant]
  4. DETROL LA [Concomitant]
  5. ETODOLAC [Concomitant]
  6. ROPINIROLE [Suspect]
     Indication: RESTLESS LEGS SYNDROME
     Dosage: 1 M;QD;PO
     Route: 048
     Dates: start: 20090105
  7. ROPINIROLE [Suspect]
     Indication: RESTLESS LEGS SYNDROME
     Dosage: 1 MG;QD;PO
     Route: 048
     Dates: start: 20080626
  8. ROPINIROLE [Suspect]
     Indication: RESTLESS LEGS SYNDROME
     Dosage: 1 MG;QD;PO
     Route: 048
     Dates: start: 20110306
  9. TRAMADOL HCL [Concomitant]
  10. COLCRYS (COLCHICINE) [Concomitant]

REACTIONS (6)
  - PRODUCT LABEL ON WRONG PRODUCT [None]
  - HYPOAESTHESIA [None]
  - CIRCUMSTANCE OR INFORMATION CAPABLE OF LEADING TO MEDICATION ERROR [None]
  - KNEE ARTHROPLASTY [None]
  - PRODUCT QUALITY ISSUE [None]
  - PRODUCT SUBSTITUTION ISSUE [None]
